FAERS Safety Report 21694376 (Version 1)
Quarter: 2022Q4

REPORT INFORMATION
  Report Type: Spontaneous
  Country: US (occurrence: None)
  Receive Date: 20221206
  Receipt Date: 20221206
  Transmission Date: 20230112
  Serious: Yes (Death)
  Sender: FDA-Public Use
  Company Number: None

PATIENT
  Sex: Female

DRUGS (2)
  1. FENTANYL [Suspect]
     Active Substance: FENTANYL
     Dosage: FREQUENCY : AS NEEDED;?
     Route: 040
  2. OXYCODONE [Suspect]
     Active Substance: OXYCODONE

REACTIONS (8)
  - Pain in extremity [None]
  - Tibia fracture [None]
  - Fall [None]
  - Fibula fracture [None]
  - Tachypnoea [None]
  - Bradycardia [None]
  - Treatment noncompliance [None]
  - Respiratory failure [None]
